FAERS Safety Report 4662242-X (Version None)
Quarter: 2005Q2

REPORT INFORMATION
  Report Type: 
  Country: None (occurrence: None)
  Receive Date: 20050512
  Receipt Date: 20050421
  Transmission Date: 20051028
  Serious: Yes (Other)
  Sender: FDA-Public Use
  Company Number: USA050495385

PATIENT
  Age: 62 Year
  Sex: Female

DRUGS (5)
  1. EVISTA [Suspect]
     Dates: start: 19990101
  2. FORTEO [Suspect]
     Indication: FRACTURE
     Dates: start: 20050407
  3. CALCIUM GLUCONATE [Concomitant]
  4. VITAMIN B6 [Concomitant]
  5. MULTI-VITAMIN [Concomitant]

REACTIONS (7)
  - DIZZINESS [None]
  - FALL [None]
  - FATIGUE [None]
  - HIP FRACTURE [None]
  - INJECTION SITE DISCOLOURATION [None]
  - PAIN IN EXTREMITY [None]
  - PHARMACEUTICAL PRODUCT COMPLAINT [None]
